FAERS Safety Report 18682343 (Version 1)
Quarter: 2020Q4

REPORT INFORMATION
  Report Type: Spontaneous
  Country: US (occurrence: US)
  Receive Date: 20201229
  Receipt Date: 20201229
  Transmission Date: 20210114
  Serious: Yes (Other)
  Sender: FDA-Public Use
  Company Number: None

PATIENT
  Sex: Male

DRUGS (1)
  1. ATROPINE OPHTHALMIC 0.04% SOLUTION [Suspect]
     Active Substance: ATROPINE SULFATE

REACTIONS (2)
  - Drug intolerance [None]
  - Secretion discharge [None]
